FAERS Safety Report 10252430 (Version 1)
Quarter: 2014Q2

REPORT INFORMATION
  Report Type: Spontaneous
  Country: AR (occurrence: AR)
  Receive Date: 20140623
  Receipt Date: 20140623
  Transmission Date: 20141212
  Serious: Yes (Hospitalization)
  Sender: FDA-Public Use
  Company Number: PHHY2014AR076817

PATIENT
  Age: 36 Year
  Sex: Female

DRUGS (1)
  1. VOLTAREN [Suspect]
     Indication: NECK PAIN
     Dosage: 75 MG, UNK
     Route: 048

REACTIONS (1)
  - Uterine leiomyoma [Unknown]
